FAERS Safety Report 5972258-9 (Version None)
Quarter: 2008Q4

REPORT INFORMATION
  Report Type: 
  Country: None (occurrence: None)
  Receive Date: 20081201
  Receipt Date: 20080109
  Transmission Date: 20090506
  Serious: No
  Sender: FDA-Public Use
  Company Number: US-TEVA-166142USA

PATIENT
  Sex: Female

DRUGS (2)
  1. SALBUTAMOL SULFATE INHALATION, 0.09 MG [Suspect]
     Indication: ASTHMA
     Route: 055
     Dates: start: 20080107, end: 20080109
  2. MONTELUKAST SODIUM [Concomitant]

REACTIONS (2)
  - DYSGEUSIA [None]
  - MALAISE [None]
